FAERS Safety Report 7513875-4 (Version None)
Quarter: 2011Q2

REPORT INFORMATION
  Report Type: 
  Country: None (occurrence: None)
  Receive Date: 20110531
  Receipt Date: 20110519
  Transmission Date: 20111010
  Serious: Yes (Hospitalization)
  Sender: FDA-Public Use
  Company Number: PHHY2011NL44546

PATIENT
  Sex: Female

DRUGS (2)
  1. ZOMETA [Suspect]
     Indication: LUNG CANCER METASTATIC
     Dosage: 4 MG/ 5 ML IN 20 MINUTES, 1X PER 21 DAYS
     Dates: start: 20110411
  2. ZOMETA [Suspect]
     Dosage: 4 MG/ 5 ML IN 20 MINUTES, 1X PER 21 DAYS
     Dates: start: 20110503

REACTIONS (3)
  - EATING DISORDER [None]
  - DEHYDRATION [None]
  - FLUID INTAKE REDUCED [None]
